FAERS Safety Report 13799772 (Version 2)
Quarter: 2017Q4

REPORT INFORMATION
  Report Type: Spontaneous
  Country: US (occurrence: US)
  Receive Date: 20170727
  Receipt Date: 20171006
  Transmission Date: 20180320
  Serious: No
  Sender: FDA-Public Use
  Company Number: US-JNJFOC-20170607248

PATIENT
  Sex: Female
  Weight: 59.42 kg

DRUGS (4)
  1. IRON [Concomitant]
     Active Substance: IRON
     Indication: PRODUCT USED FOR UNKNOWN INDICATION
     Route: 065
  2. WOMENS ROGAINE UNSCENTED [Suspect]
     Active Substance: MINOXIDIL
     Route: 061
  3. WOMENS ROGAINE UNSCENTED [Suspect]
     Active Substance: MINOXIDIL
     Indication: ALOPECIA
     Dosage: HALF CAPFUL
     Route: 061
     Dates: start: 201610, end: 201706
  4. PREDNISONE. [Concomitant]
     Active Substance: PREDNISONE
     Indication: STENOSIS
     Route: 065
     Dates: start: 201703

REACTIONS (2)
  - Alopecia [Not Recovered/Not Resolved]
  - Drug effect incomplete [Unknown]
